FAERS Safety Report 7892172-1 (Version None)
Quarter: 2011Q4

REPORT INFORMATION
  Report Type: 
  Country: None (occurrence: None)
  Receive Date: 20111103
  Receipt Date: 20111025
  Transmission Date: 20120403
  Serious: Yes (Hospitalization, Other)
  Sender: FDA-Public Use
  Company Number: US-ASTRAZENECA-2011SE64349

PATIENT
  Sex: Female

DRUGS (4)
  1. SEROQUEL [Suspect]
     Route: 048
     Dates: start: 20100101
  2. SEROQUEL [Suspect]
     Indication: DEPRESSION
     Dosage: 400 MG AT NIGHT AND 100 MG TWICE A DAY
     Route: 048
     Dates: start: 20100101, end: 20100101
  3. SEROQUEL [Suspect]
     Indication: CONVULSION
     Dosage: 400 MG AT NIGHT AND 100 MG TWICE A DAY
     Route: 048
     Dates: start: 20100101, end: 20100101
  4. SEROQUEL [Suspect]
     Route: 048
     Dates: start: 20100101

REACTIONS (6)
  - BACK DISORDER [None]
  - DYSPNOEA [None]
  - OFF LABEL USE [None]
  - DYSLEXIA [None]
  - HYPERTENSION [None]
  - CEREBROVASCULAR ACCIDENT [None]
